FAERS Safety Report 9205374 (Version 2)
Quarter: 2013Q2

REPORT INFORMATION
  Report Type: Spontaneous
  Country: US (occurrence: US)
  Receive Date: 20130402
  Receipt Date: 20130423
  Transmission Date: 20140414
  Serious: Yes (Other)
  Sender: FDA-Public Use
  Company Number: US-TEVA-395630USA

PATIENT
  Sex: Female

DRUGS (1)
  1. PROAIR HFA [Suspect]
     Route: 055

REACTIONS (4)
  - Myocardial infarction [Recovered/Resolved]
  - Arrhythmia [Recovered/Resolved]
  - Pain in extremity [Unknown]
  - Hypersensitivity [Unknown]
